FAERS Safety Report 4651729-1 (Version None)
Quarter: 2005Q2

REPORT INFORMATION
  Report Type: 
  Country: None (occurrence: None)
  Receive Date: 20050404
  Receipt Date: 20050106
  Transmission Date: 20051028
  Serious: Yes (Other)
  Sender: FDA-Public Use
  Company Number: USA041184141

PATIENT
  Sex: Male

DRUGS (3)
  1. CYMBALTA [Suspect]
     Indication: DEPRESSION
     Dosage: 30 MG DAY
     Dates: start: 20041115, end: 20041117
  2. METOPROLOL [Concomitant]
  3. PRAVACHOL [Concomitant]

REACTIONS (1)
  - ATRIAL FIBRILLATION [None]
